FAERS Safety Report 11059319 (Version 1)
Quarter: 2015Q2

REPORT INFORMATION
  Report Type: Spontaneous
  Country: DK (occurrence: CA)
  Receive Date: 20150423
  Receipt Date: 20150423
  Transmission Date: 20150821
  Serious: Yes (Disabling)
  Sender: FDA-Public Use
  Company Number: CA-FRI-1000076062

PATIENT
  Age: 55 Year
  Weight: 88.45 kg

DRUGS (2)
  1. ZELDOX [Concomitant]
     Active Substance: ZIPRASIDONE
     Dosage: DAILY DOSE NOT REPORTED.
  2. ESCITALOPRAM [Suspect]
     Active Substance: ESCITALOPRAM OXALATE
     Indication: ANXIETY
     Dosage: OVERDOSE: ESCITALOPRAM 30 MG DAILY
     Route: 048

REACTIONS (14)
  - Abnormal dreams [Recovered/Resolved with Sequelae]
  - Hunger [Recovered/Resolved with Sequelae]
  - Hyperhidrosis [Recovered/Resolved with Sequelae]
  - Cold sweat [Recovered/Resolved with Sequelae]
  - Rhinorrhoea [Recovered/Resolved with Sequelae]
  - Abdominal discomfort [Recovered/Resolved with Sequelae]
  - Skin warm [Recovered/Resolved with Sequelae]
  - Micturition disorder [Recovered/Resolved with Sequelae]
  - Prescribed overdose [Recovered/Resolved]
  - Antiandrogen therapy [Recovered/Resolved with Sequelae]
  - Diarrhoea [Recovered/Resolved with Sequelae]
  - Sleep disorder [Recovered/Resolved with Sequelae]
  - Arthralgia [Recovered/Resolved with Sequelae]
  - Flatulence [Recovered/Resolved with Sequelae]
